FAERS Safety Report 5190137-4 (Version None)
Quarter: 2006Q4

REPORT INFORMATION
  Report Type: 
  Country: None (occurrence: None)
  Receive Date: 20061222
  Receipt Date: 20061215
  Transmission Date: 20070319
  Serious: Yes (Other)
  Sender: FDA-Public Use
  Company Number: US-JNJFOC-20061204541

PATIENT
  Sex: Male
  Weight: 58.97 kg

DRUGS (5)
  1. PREZISTA [Suspect]
     Indication: HIV INFECTION
     Route: 048
  2. NORVIR [Concomitant]
     Indication: HIV INFECTION
  3. MK0518 [Concomitant]
     Indication: HIV INFECTION
     Route: 065
  4. FUZEON [Concomitant]
     Indication: HIV INFECTION
     Route: 050
  5. TRUVADA [Concomitant]
     Indication: HIV INFECTION

REACTIONS (1)
  - SQUAMOUS CELL CARCINOMA [None]
